FAERS Safety Report 21441707 (Version 2)
Quarter: 2022Q4

REPORT INFORMATION
  Report Type: Spontaneous
  Country: US (occurrence: US)
  Receive Date: 20221011
  Receipt Date: 20221014
  Transmission Date: 20230113
  Serious: No
  Sender: FDA-Public Use
  Company Number: US-SANOFI-01308854

PATIENT
  Age: 88 Year
  Sex: Female

DRUGS (1)
  1. LANTUS SOLOSTAR [Suspect]
     Active Substance: INSULIN GLARGINE
     Indication: Type 2 diabetes mellitus
     Dosage: 28 UNITS QAM AND 6 UNITS QHS DRUG TREATMENT DURATION:OVER 10 YEARS AGO

REACTIONS (3)
  - Throat clearing [Unknown]
  - Visual impairment [Unknown]
  - Inappropriate schedule of product administration [Unknown]
